FAERS Safety Report 8048122-0 (Version None)
Quarter: 2012Q1

REPORT INFORMATION
  Report Type: 
  Country: None (occurrence: None)
  Receive Date: 20120112
  Receipt Date: 20120112
  Transmission Date: 20120608
  Serious: Yes (Hospitalization)
  Sender: FDA-Public Use
  Company Number: None

PATIENT
  Age: 68 Year
  Sex: Female

DRUGS (1)
  1. LATUDA [Suspect]
     Indication: SCHIZOAFFECTIVE DISORDER
     Dosage: 40MG DAILY ORAL
     Route: 048
     Dates: start: 20111001, end: 20111229

REACTIONS (2)
  - DIABETES INSIPIDUS [None]
  - RENAL FAILURE ACUTE [None]
